FAERS Safety Report 11699372 (Version 1)
Quarter: 2015Q4

REPORT INFORMATION
  Report Type: Spontaneous
  Country: US (occurrence: US)
  Receive Date: 20151104
  Receipt Date: 20151104
  Transmission Date: 20160304
  Serious: Yes (Other)
  Sender: FDA-Public Use
  Company Number: US-AMGEN-USASP2015114627

PATIENT
  Age: 65 Year
  Sex: Male

DRUGS (4)
  1. FOLIC ACID. [Concomitant]
     Active Substance: FOLIC ACID
     Dosage: 1 TAB TAKEN DAILY
  2. CELEBREX [Concomitant]
     Active Substance: CELECOXIB
     Dosage: 1 TABLET TAKEN DAILY
  3. METHOTREXATE [Concomitant]
     Active Substance: METHOTREXATE
     Dosage: 0.7 MG, ONCE A WEEK
  4. ENBREL [Suspect]
     Active Substance: ETANERCEPT
     Indication: PSORIATIC ARTHROPATHY
     Dosage: 50 MG, ONCE WEEKLY
     Route: 065

REACTIONS (2)
  - Knee operation [Recovered/Resolved]
  - Device malfunction [Unknown]

NARRATIVE: CASE EVENT DATE: 201509
